FAERS Safety Report 16929358 (Version 2)
Quarter: 2025Q1

REPORT INFORMATION
  Report Type: Report from Study
  Country: US (occurrence: US)
  Receive Date: 20191017
  Receipt Date: 20250217
  Transmission Date: 20250409
  Serious: Yes (Life-Threatening, Other)
  Sender: TAKEDA
  Company Number: US-SHIRE-US201933494

PATIENT
  Age: 58 Year
  Sex: Male

DRUGS (5)
  1. PARATHYROID HORMONE [Suspect]
     Active Substance: PARATHYROID HORMONE
     Indication: Hypoparathyroidism
  2. PARATHYROID HORMONE [Suspect]
     Active Substance: PARATHYROID HORMONE
  3. PARATHYROID HORMONE [Suspect]
     Active Substance: PARATHYROID HORMONE
  4. CALCIUM [Concomitant]
     Active Substance: CALCIUM
     Indication: Product used for unknown indication
  5. ROCALTROL [Concomitant]
     Active Substance: CALCITRIOL
     Indication: Product used for unknown indication

REACTIONS (3)
  - Hypocalcaemia [Unknown]
  - Recalled product [Unknown]
  - Product use issue [Unknown]

NARRATIVE: CASE EVENT DATE: 20250214
